FAERS Safety Report 4791489-7 (Version None)
Quarter: 2005Q4

REPORT INFORMATION
  Report Type: 
  Country: None (occurrence: None)
  Receive Date: 20051007
  Receipt Date: 20041021
  Transmission Date: 20060501
  Serious: No
  Sender: FDA-Public Use
  Company Number: US-BRISTOL-MYERS SQUIBB COMPANY-12740411

PATIENT
  Age: 71 Year
  Sex: Female

DRUGS (7)
  1. AVAPRO [Suspect]
     Indication: HYPERTENSION
     Route: 048
     Dates: start: 20041020
  2. INDERAL [Concomitant]
  3. CLARITIN [Concomitant]
  4. ZANTAC [Concomitant]
  5. MULTI-VITAMINS [Concomitant]
  6. CALCIUM GLUCONATE [Concomitant]
  7. MAGNESIUM [Concomitant]

REACTIONS (3)
  - BURNING SENSATION [None]
  - DYSGEUSIA [None]
  - TONGUE DISCOLOURATION [None]
